FAERS Safety Report 12219039 (Version 4)
Quarter: 2016Q2

REPORT INFORMATION
  Report Type: Spontaneous
  Country: BR (occurrence: BR)
  Receive Date: 20160329
  Receipt Date: 20160519
  Transmission Date: 20160815
  Serious: Yes (Other)
  Sender: FDA-Public Use
  Company Number: BR-ELI_LILLY_AND_COMPANY-BR201603009035

PATIENT
  Sex: Male
  Weight: 86 kg

DRUGS (4)
  1. HUMULIN N [Suspect]
     Active Substance: INSULIN HUMAN
     Dosage: 10 IU, OTHER BEFORE DINNER
     Route: 065
     Dates: start: 201511
  2. GLIFAGE [Concomitant]
     Active Substance: METFORMIN HYDROCHLORIDE
     Dosage: 500 MG, TID
     Route: 048
  3. HUMULIN N [Suspect]
     Active Substance: INSULIN HUMAN
     Indication: PRODUCT USED FOR UNKNOWN INDICATION
     Dosage: 30 IU, OTHER BEFORE BREAKFAST
     Route: 058
     Dates: start: 201511
  4. HUMULIN R [Suspect]
     Active Substance: INSULIN HUMAN
     Indication: PRODUCT USED FOR UNKNOWN INDICATION
     Dosage: 10 IU, TID
     Route: 058
     Dates: start: 201511

REACTIONS (7)
  - Incorrect product storage [Unknown]
  - Breast cancer [Unknown]
  - Breast mass [Recovering/Resolving]
  - Drug dose omission [Unknown]
  - Blood glucose increased [Not Recovered/Not Resolved]
  - Gynaecomastia [Recovering/Resolving]
  - Drug ineffective [Unknown]
